FAERS Safety Report 6442278-9 (Version None)
Quarter: 2009Q4

REPORT INFORMATION
  Report Type: 
  Country: None (occurrence: None)
  Receive Date: 20091112
  Receipt Date: 20091027
  Transmission Date: 20100525
  Serious: Yes (Other)
  Sender: FDA-Public Use
  Company Number: B0602218A

PATIENT
  Age: 42 Year
  Sex: Male

DRUGS (3)
  1. ZIDOVUDINE [Suspect]
     Indication: HIV TEST POSITIVE
     Dates: start: 20010201, end: 20080601
  2. LAMIVUDINE [Suspect]
     Indication: HIV TEST POSITIVE
     Dates: start: 20010201, end: 20080601
  3. ABACAVIR SULFATE [Suspect]
     Indication: HIV TEST POSITIVE
     Dates: start: 20010201, end: 20080601

REACTIONS (5)
  - DIABETES MELLITUS [None]
  - DRUG RESISTANCE [None]
  - TREATMENT FAILURE [None]
  - VIRAEMIA [None]
  - VIRAL MUTATION IDENTIFIED [None]
